FAERS Safety Report 19827087 (Version 1)
Quarter: 2021Q3

REPORT INFORMATION
  Report Type: Spontaneous
  Country: US (occurrence: US)
  Receive Date: 20210914
  Receipt Date: 20210914
  Transmission Date: 20211014
  Serious: Yes (Death)
  Sender: FDA-Public Use
  Company Number: None

PATIENT
  Age: 20 Year
  Sex: Male
  Weight: 87.75 kg

DRUGS (1)
  1. IVERMECTIN. [Suspect]
     Active Substance: IVERMECTIN
     Indication: COVID-19
     Dosage: ?          QUANTITY:3 CAPSULE(S);OTHER FREQUENCY:5 TIMES;?
     Route: 048
     Dates: start: 20210902, end: 20210908

REACTIONS (1)
  - Death [None]

NARRATIVE: CASE EVENT DATE: 20210907
